FAERS Safety Report 4340051-9 (Version None)
Quarter: 2004Q2

REPORT INFORMATION
  Report Type: 
  Country: None (occurrence: None)
  Receive Date: 20040415
  Receipt Date: 20040415
  Transmission Date: 20050107
  Serious: No
  Sender: FDA-Public Use
  Company Number: None

PATIENT
  Age: 49 Year
  Sex: Male
  Weight: 117.028 kg

DRUGS (2)
  1. WARFARIN SODIUM [Suspect]
     Indication: COAGULOPATHY
     Dosage: 12.5 MG, 10 MG DAY PO; ALTERNATING
     Route: 048
  2. WARFARIN SODIUM [Suspect]
     Indication: PROTEIN S DEFICIENCY
     Dosage: 12.5 MG, 10 MG DAY PO; ALTERNATING
     Route: 048

REACTIONS (4)
  - COAGULOPATHY [None]
  - DRUG INEFFECTIVE [None]
  - PHARMACEUTICAL PRODUCT COMPLAINT [None]
  - PROTEIN S DEFICIENCY [None]
